FAERS Safety Report 12129958 (Version 1)
Quarter: 2016Q1

REPORT INFORMATION
  Report Type: Other
  Country: US (occurrence: US)
  Receive Date: 20160229
  Receipt Date: 20160229
  Transmission Date: 20160526
  Serious: No
  Sender: FDA-Public Use
  Company Number: US-ACORDA-ACO_27803_2011

PATIENT
  Sex: Female
  Weight: 54.42 kg

DRUGS (5)
  1. AMPYRA [Suspect]
     Active Substance: DALFAMPRIDINE
     Indication: GAIT DISTURBANCE
     Dosage: 10 MG, BID
     Route: 048
     Dates: start: 20100602, end: 201012
  2. REBIF [Suspect]
     Active Substance: INTERFERON BETA-1A
     Indication: PRODUCT USED FOR UNKNOWN INDICATION
     Dosage: 44 MCG, 3X/WK
     Route: 058
  3. CELEXA [Concomitant]
     Active Substance: CITALOPRAM HYDROBROMIDE
     Dosage: UNK
  4. SONATA                             /00061001/ [Concomitant]
     Dosage: UNK
  5. ZANAFLEX [Suspect]
     Active Substance: TIZANIDINE HYDROCHLORIDE
     Indication: PRODUCT USED FOR UNKNOWN INDICATION
     Dosage: UNK
     Route: 065

REACTIONS (12)
  - Gait disturbance [Unknown]
  - Insomnia [Unknown]
  - Muscular weakness [Unknown]
  - Headache [Recovered/Resolved]
  - Balance disorder [Unknown]
  - Drug ineffective [Unknown]
  - Hand fracture [Unknown]
  - Fall [Unknown]
  - Hypoaesthesia [Unknown]
  - Walking aid user [Unknown]
  - Peripheral swelling [Unknown]
  - Depression [Unknown]

NARRATIVE: CASE EVENT DATE: 2010
